FAERS Safety Report 6212736-0 (Version None)
Quarter: 2009Q2

REPORT INFORMATION
  Report Type: 
  Country: None (occurrence: None)
  Receive Date: 20090603
  Receipt Date: 20090526
  Transmission Date: 20091009
  Serious: Yes (Other)
  Sender: FDA-Public Use
  Company Number: PHHY2009DE20549

PATIENT
  Sex: Female

DRUGS (6)
  1. ZOMETA [Suspect]
     Indication: PLASMACYTOMA
     Route: 042
  2. MARCUMAR [Concomitant]
     Dosage: UNK
     Dates: end: 20080101
  3. FRAXIPARIN [Concomitant]
  4. RENAGEL [Concomitant]
  5. DOCITON [Concomitant]
  6. NITRENDIPIN [Concomitant]

REACTIONS (1)
  - OSTEONECROSIS [None]
